FAERS Safety Report 4977892-0 (Version None)
Quarter: 2006Q2

REPORT INFORMATION
  Report Type: 
  Country: None (occurrence: None)
  Receive Date: 20060420
  Receipt Date: 20050913
  Transmission Date: 20061013
  Serious: Yes (Hospitalization, Other)
  Sender: FDA-Public Use
  Company Number: US-MERCK-0509USA01818

PATIENT
  Age: 76 Year
  Sex: Female
  Weight: 69 kg

DRUGS (1)
  1. VIOXX [Suspect]
     Indication: RHEUMATOID ARTHRITIS
     Route: 048
     Dates: start: 20001201, end: 20040406

REACTIONS (21)
  - ANAEMIA POSTOPERATIVE [None]
  - ANXIETY DISORDER [None]
  - CAROTID ARTERY STENOSIS [None]
  - CEREBRAL ARTERY OCCLUSION [None]
  - CHEST PAIN [None]
  - DEPRESSION [None]
  - DYSLIPIDAEMIA [None]
  - DYSPHASIA [None]
  - DYSPNOEA [None]
  - FIBULA FRACTURE [None]
  - HEMIPLEGIA [None]
  - HUMERUS FRACTURE [None]
  - HYPOMAGNESAEMIA [None]
  - INSOMNIA [None]
  - JOINT INJURY [None]
  - MUSCULOSKELETAL CHEST PAIN [None]
  - OSTEOARTHRITIS [None]
  - OSTEOPOROSIS [None]
  - SHOULDER PAIN [None]
  - SKIN DISORDER [None]
  - TRANSIENT ISCHAEMIC ATTACK [None]
